FAERS Safety Report 8168034-1 (Version None)
Quarter: 2012Q1

REPORT INFORMATION
  Report Type: 
  Country: None (occurrence: None)
  Receive Date: 20120227
  Receipt Date: 20120215
  Transmission Date: 20120608
  Serious: Yes (Other)
  Sender: FDA-Public Use
  Company Number: PHHY2012DE002334

PATIENT
  Age: 70 Year
  Sex: Female

DRUGS (5)
  1. BISOPROLOL FUMARATE [Concomitant]
  2. FEMARA [Suspect]
     Indication: BREAST CANCER
     Dosage: UNK UKN, UNK
     Route: 048
  3. LISIHEXAL [Concomitant]
  4. SPIRIVA [Concomitant]
  5. FLUTICASONE PROPIONATE/SALMETEROL [Concomitant]

REACTIONS (1)
  - TRAUMATIC HAEMATOMA [None]
